FAERS Safety Report 5906501-9 (Version None)
Quarter: 2008Q4

REPORT INFORMATION
  Report Type: 
  Country: None (occurrence: None)
  Receive Date: 20081002
  Receipt Date: 20081001
  Transmission Date: 20090506
  Serious: Yes (Life-Threatening, Hospitalization)
  Sender: FDA-Public Use
  Company Number: DE-B.I. PHARMACEUTICALS,INC./RIDGEFIELD-2008-DE-01689DE

PATIENT
  Sex: Female

DRUGS (2)
  1. AGGRENOX [Suspect]
     Indication: CEREBRAL ISCHAEMIA
     Dosage: 2ANZ
     Route: 048
  2. METOPROLOL 50MG [Concomitant]
     Dosage: 2ANZ

REACTIONS (3)
  - ANAPHYLACTIC SHOCK [None]
  - CIRCULATORY COLLAPSE [None]
  - DYSPNOEA [None]
